FAERS Safety Report 23096346 (Version 10)
Quarter: 2025Q2

REPORT INFORMATION
  Report Type: Spontaneous
  Country: GB (occurrence: GB)
  Receive Date: 20231023
  Receipt Date: 20250519
  Transmission Date: 20250716
  Serious: Yes (Life-Threatening, Hospitalization, Other)
  Sender: MYLAN
  Company Number: GB-MYLANLABS-2023M1111317

PATIENT
  Age: 37 Year
  Sex: Female

DRUGS (4)
  1. CLOZARIL [Suspect]
     Active Substance: CLOZAPINE
     Indication: Schizophrenia
     Dates: start: 20111129, end: 20231102
  2. CLOZARIL [Suspect]
     Active Substance: CLOZAPINE
     Indication: Borderline personality disorder
  3. CLOZARIL [Suspect]
     Active Substance: CLOZAPINE
  4. CLOZARIL [Suspect]
     Active Substance: CLOZAPINE

REACTIONS (18)
  - Agranulocytosis [Unknown]
  - Hospitalisation [Unknown]
  - Mental impairment [Unknown]
  - Hallucination [Unknown]
  - Faecaloma [Unknown]
  - Intestinal obstruction [Unknown]
  - Psychotic disorder [Unknown]
  - Decreased appetite [Unknown]
  - Constipation [Unknown]
  - General physical health deterioration [Unknown]
  - White blood cell count decreased [Recovered/Resolved]
  - Neutrophil count decreased [Recovered/Resolved]
  - Eosinophil count decreased [Not Recovered/Not Resolved]
  - Agitation [Unknown]
  - Anxiety [Unknown]
  - Delusion [Unknown]
  - Malaise [Unknown]
  - Off label use [Unknown]

NARRATIVE: CASE EVENT DATE: 20231126
